FAERS Safety Report 8560264-X (Version None)
Quarter: 2012Q3

REPORT INFORMATION
  Report Type: 
  Country: None (occurrence: None)
  Receive Date: 20120727
  Receipt Date: 20120727
  Transmission Date: 20120928
  Serious: Yes (Hospitalization)
  Sender: FDA-Public Use
  Company Number: None

PATIENT
  Age: 45 Year
  Sex: Male
  Weight: 67.1324 kg

DRUGS (15)
  1. POTASSIUM CHLORIDE [Concomitant]
  2. LANTUS [Concomitant]
  3. PAXIL [Concomitant]
  4. MAG OX [Concomitant]
  5. LASIX [Concomitant]
  6. XANAX [Concomitant]
  7. BUPRON [Concomitant]
  8. VICTOZA [Concomitant]
  9. PRILOSEC [Concomitant]
  10. HYZAAR [Concomitant]
  11. TOPROL-XL [Concomitant]
  12. TESTIM [Concomitant]
  13. PHENERGAN HCL [Suspect]
     Indication: NAUSEA
     Dosage: 8-10 25MG TABS ONCE PO RECENT
     Route: 048
  14. GLYBURIDE [Concomitant]
  15. PRIMIDONE [Concomitant]

REACTIONS (2)
  - ACCIDENTAL OVERDOSE [None]
  - AMMONIA INCREASED [None]
